FAERS Safety Report 4834442-7 (Version None)
Quarter: 2005Q4

REPORT INFORMATION
  Report Type: 
  Country: None (occurrence: None)
  Receive Date: 20051122
  Receipt Date: 20041101
  Transmission Date: 20060501
  Serious: No
  Sender: FDA-Public Use
  Company Number: US-BRISTOL-MYERS SQUIBB COMPANY-12751384

PATIENT
  Age: 76 Year
  Sex: Female
  Weight: 86 kg

DRUGS (9)
  1. PRAVACHOL [Suspect]
     Indication: BLOOD CHOLESTEROL INCREASED
     Route: 048
  2. SYNTHROID [Concomitant]
  3. ACIPHEX [Concomitant]
  4. ALBUTEROL [Concomitant]
     Dosage: ^BUT ALMOST DAILY DURING THIS SEASON^
  5. INTAL [Concomitant]
     Dosage: ^BUT ALMOST DAILY DURING THIS SEASON^
  6. DIOVAN [Concomitant]
  7. EVISTA [Concomitant]
  8. PLAVIX [Concomitant]
  9. CEPHALEXIN [Concomitant]
     Dates: start: 20041101

REACTIONS (1)
  - PSORIASIS [None]
